FAERS Safety Report 7043989-7 (Version None)
Quarter: 2010Q4

REPORT INFORMATION
  Report Type: 
  Country: None (occurrence: None)
  Receive Date: 20101012
  Receipt Date: 20101012
  Transmission Date: 20110411
  Serious: No
  Sender: FDA-Public Use
  Company Number: None

PATIENT
  Age: 19 Year
  Sex: Female
  Weight: 48.9885 kg

DRUGS (1)
  1. KENALOG-40 [Suspect]
     Indication: NERVE BLOCK
     Dosage: 6ML PER SITE X 2 ONCE CUTANEOUS
     Route: 003

REACTIONS (3)
  - ATROPHY [None]
  - HEADACHE [None]
  - PAIN [None]
